FAERS Safety Report 17743245 (Version 1)
Quarter: 2020Q2

REPORT INFORMATION
  Report Type: Report from Study
  Country: FR (occurrence: FR)
  Receive Date: 20200505
  Receipt Date: 20200505
  Transmission Date: 20200714
  Serious: Yes (Other)
  Sender: FDA-Public Use
  Company Number: FR-TEVA-2020-FR-1231171

PATIENT
  Age: 28 Year
  Sex: Male

DRUGS (3)
  1. ZIDOVUDINE. [Suspect]
     Active Substance: ZIDOVUDINE
     Indication: ADULT T-CELL LYMPHOMA/LEUKAEMIA
     Dosage: 600 MILLIGRAM DAILY; MAINTENANCE THERAPY
     Route: 048
  2. INTERFERON ALFA NOS [Suspect]
     Active Substance: INTERFERON ALFA-2A OR INTERFERON ALFA-2B
     Indication: ADULT T-CELL LYMPHOMA/LEUKAEMIA
     Dosage: MAINTENANCE THERAPY
     Route: 065
  3. ARSENIC TRIOXIDE. [Suspect]
     Active Substance: ARSENIC TRIOXIDE
     Indication: ADULT T-CELL LYMPHOMA/LEUKAEMIA
     Dosage: .15 MG/KG DAILY; SCHEDULED TO RECEIVE MAINTENANCE THERAPY WITH FOR UP TO 8 WEEKS
     Route: 041

REACTIONS (4)
  - Anaemia [Unknown]
  - Thrombocytopenia [Unknown]
  - Skin toxicity [Recovered/Resolved]
  - Neutropenia [Unknown]
